FAERS Safety Report 10463665 (Version 1)
Quarter: 2014Q3

REPORT INFORMATION
  Report Type: Spontaneous
  Country: US (occurrence: None)
  Receive Date: 20140918
  Receipt Date: 20140918
  Transmission Date: 20150326
  Serious: Yes (Disabling)
  Sender: FDA-Public Use
  Company Number: None

PATIENT
  Age: 77 Year
  Sex: Male
  Weight: 90.72 kg

DRUGS (1)
  1. ONGLYZA [Suspect]
     Active Substance: SAXAGLIPTIN HYDROCHLORIDE
     Indication: DIABETES MELLITUS
     Route: 048

REACTIONS (8)
  - Eye swelling [None]
  - Lip swelling [None]
  - Urticaria [None]
  - Swelling face [None]
  - Rash [None]
  - Dysphonia [None]
  - Drug hypersensitivity [None]
  - Gingival swelling [None]

NARRATIVE: CASE EVENT DATE: 20140905
